FAERS Safety Report 16250424 (Version 1)
Quarter: 2019Q2

REPORT INFORMATION
  Report Type: Spontaneous
  Country: US (occurrence: US)
  Receive Date: 20190429
  Receipt Date: 20190429
  Transmission Date: 20190711
  Serious: No
  Sender: FDA-Public Use
  Company Number: US-BAYER-2019-084807

PATIENT
  Age: 17 Year
  Sex: Female

DRUGS (3)
  1. LEVONORGESTREL INTRAUTERINE DEVICE [Suspect]
     Active Substance: LEVONORGESTREL
  2. LEVONORGESTREL. [Suspect]
     Active Substance: LEVONORGESTREL
     Dosage: UNK
     Route: 015
  3. LEVONORGESTREL. [Suspect]
     Active Substance: LEVONORGESTREL
     Dosage: UNK
     Route: 015

REACTIONS (1)
  - Device expulsion [None]
